FAERS Safety Report 5379168-9 (Version None)
Quarter: 2007Q3

REPORT INFORMATION
  Report Type: 
  Country: None (occurrence: None)
  Receive Date: 20070705
  Receipt Date: 20070625
  Transmission Date: 20080115
  Serious: Yes (Other)
  Sender: FDA-Public Use
  Company Number: BR-BRISTOL-MYERS SQUIBB COMPANY-13742564

PATIENT
  Age: 39 Year
  Sex: Male

DRUGS (2)
  1. ATAZANAVIR SULFATE [Suspect]
     Indication: HIV INFECTION
     Route: 048
     Dates: start: 20070207
  2. LAMIVUDINE + ZIDOVUDINE [Concomitant]
     Indication: HIV INFECTION
     Dosage: LAMIVUDINE 150 MG + ZIDOVUDINE 300 MG
     Route: 048
     Dates: start: 20070207

REACTIONS (13)
  - ABDOMINAL PAIN [None]
  - ACHOLIA [None]
  - ALANINE AMINOTRANSFERASE INCREASED [None]
  - ANOREXIA [None]
  - ASTHENIA [None]
  - CHOLURIA [None]
  - DIARRHOEA [None]
  - HAEMATOCRIT DECREASED [None]
  - HEPATITIS [None]
  - JAUNDICE [None]
  - MALAISE [None]
  - NAUSEA [None]
  - VOMITING [None]
